FAERS Safety Report 19172009 (Version 21)
Quarter: 2023Q2

REPORT INFORMATION
  Report Type: Spontaneous
  Country: CA (occurrence: CA)
  Receive Date: 20210423
  Receipt Date: 20230602
  Transmission Date: 20230721
  Serious: Yes (Hospitalization, Other)
  Sender: FDA-Public Use
  Company Number: CA-CELLTRION INC.-2019CA025885

PATIENT

DRUGS (23)
  1. INFLECTRA [Suspect]
     Active Substance: INFLIXIMAB-DYYB
     Indication: Crohn^s disease
     Dosage: 235MG (5MG/KG, 0 WEEK DOSE)
     Route: 042
     Dates: start: 20190704, end: 20190704
  2. INFLECTRA [Suspect]
     Active Substance: INFLIXIMAB-DYYB
     Dosage: 230 MG (5 MG/KG, 2 WEEK DOSE)
     Route: 042
     Dates: start: 20190717, end: 20190717
  3. INFLECTRA [Suspect]
     Active Substance: INFLIXIMAB-DYYB
     Dosage: 245MG (5MG/KG, 6 WEEK DOSE)
     Route: 042
     Dates: start: 20190815, end: 20190815
  4. INFLECTRA [Suspect]
     Active Substance: INFLIXIMAB-DYYB
     Dosage: 245 MG (5MG/KG, 6 WEEK DOSE)
     Route: 042
     Dates: start: 20190815, end: 20190815
  5. INFLECTRA [Suspect]
     Active Substance: INFLIXIMAB-DYYB
     Dosage: 5 MG/KG, EVERY 8 WEEKS
     Route: 042
     Dates: start: 20191009
  6. INFLECTRA [Suspect]
     Active Substance: INFLIXIMAB-DYYB
     Dosage: 5 MG/KG, 0, 2, 6 THEN EVERY 8 WEEKS
     Route: 042
     Dates: start: 20191205
  7. INFLECTRA [Suspect]
     Active Substance: INFLIXIMAB-DYYB
     Dosage: 5 MG/KG, 0, 2, 6 THEN EVERY 8 WEEKS
     Route: 042
     Dates: start: 20200129
  8. INFLECTRA [Suspect]
     Active Substance: INFLIXIMAB-DYYB
     Dosage: 5 MG/KG, 0, 2, 6 THEN EVERY 8 WEEKS
     Route: 042
     Dates: start: 20200506
  9. INFLECTRA [Suspect]
     Active Substance: INFLIXIMAB-DYYB
     Dosage: 5 MG/KG, 0, 2, 6 THEN EVERY 8 WEEKS
     Route: 042
     Dates: start: 20200709
  10. INFLECTRA [Suspect]
     Active Substance: INFLIXIMAB-DYYB
     Dosage: 5 MG/KG, 0, 2, 6 THEN EVERY 8 WEEKS
     Route: 042
     Dates: start: 20201222
  11. INFLECTRA [Suspect]
     Active Substance: INFLIXIMAB-DYYB
     Dosage: 5 MG/KG, 0, 2, 6 THEN EVERY 8 WEEKS
     Route: 042
     Dates: start: 20210224
  12. INFLECTRA [Suspect]
     Active Substance: INFLIXIMAB-DYYB
     Dosage: 5 MG/KG, 0, 2, 6 THEN EVERY 8 WEEKS
     Route: 042
     Dates: start: 20210415
  13. INFLECTRA [Suspect]
     Active Substance: INFLIXIMAB-DYYB
     Dosage: 5 MG/KG, 0, 2, 6 THEN EVERY 8 WEEKS
     Route: 042
     Dates: start: 20210611
  14. INFLECTRA [Suspect]
     Active Substance: INFLIXIMAB-DYYB
     Dosage: 5 MG/KG, 0, 2, 6 THEN EVERY 8 WEEKS
     Route: 042
     Dates: start: 20210805
  15. INFLECTRA [Suspect]
     Active Substance: INFLIXIMAB-DYYB
     Dosage: 5 MG/KG, 0, 2, 6 THEN EVERY 8 WEEKS
     Route: 042
     Dates: start: 20211202
  16. INFLECTRA [Suspect]
     Active Substance: INFLIXIMAB-DYYB
     Dosage: 5 MG/KG, EVERY 8 WEEKS
     Route: 042
     Dates: start: 20220127
  17. INFLECTRA [Suspect]
     Active Substance: INFLIXIMAB-DYYB
     Dosage: 5 MG/KG, EVERY 8 WEEKS
     Route: 042
     Dates: start: 20220324
  18. INFLECTRA [Suspect]
     Active Substance: INFLIXIMAB-DYYB
     Dosage: 5 MG/KG, EVERY 8 WEEKS
     Route: 042
     Dates: start: 20220809
  19. INFLECTRA [Suspect]
     Active Substance: INFLIXIMAB-DYYB
     Dosage: 5 MG/KG, EVERY 8 WEEKS
     Route: 042
     Dates: start: 20221004
  20. INFLECTRA [Suspect]
     Active Substance: INFLIXIMAB-DYYB
     Dosage: 5 MG/KG, EVERY 8 WEEKS
     Route: 042
     Dates: start: 20230210
  21. ENOXAPARIN [Concomitant]
     Active Substance: ENOXAPARIN
     Dosage: 400 MG
  22. IMURAN [Concomitant]
     Active Substance: AZATHIOPRINE
     Dosage: 1 DF, DOSAGE INFORMATION IS NOT AVAILABLE
     Route: 065
     Dates: start: 201904
  23. PREDNISONE [Concomitant]
     Active Substance: PREDNISONE
     Dosage: 1 DF, DOSAGE INFORMATION IS NOT AVAILABLE
     Route: 065
     Dates: start: 201902

REACTIONS (24)
  - Fall [Unknown]
  - Hip fracture [Recovering/Resolving]
  - Fall [Recovered/Resolved]
  - Upper limb fracture [Recovering/Resolving]
  - Malaise [Unknown]
  - Nasopharyngitis [Unknown]
  - Blood pressure systolic increased [Unknown]
  - Blood pressure fluctuation [Unknown]
  - Hypoacusis [Unknown]
  - Weight decreased [Unknown]
  - Infection [Unknown]
  - COVID-19 [Recovered/Resolved]
  - Urinary tract infection [Recovered/Resolved]
  - Eating disorder [Unknown]
  - Intestinal mass [Unknown]
  - Pelvic organ prolapse [Unknown]
  - Vaginal disorder [Not Recovered/Not Resolved]
  - Gait disturbance [Unknown]
  - Mobility decreased [Not Recovered/Not Resolved]
  - Arthralgia [Not Recovered/Not Resolved]
  - Drug level below therapeutic [Not Recovered/Not Resolved]
  - Off label use [Unknown]
  - Intentional product use issue [Unknown]
  - Inappropriate schedule of product administration [Unknown]

NARRATIVE: CASE EVENT DATE: 20191009
